APPROVED DRUG PRODUCT: CARBIDOPA AND LEVODOPA
Active Ingredient: CARBIDOPA; LEVODOPA
Strength: 25MG;250MG
Dosage Form/Route: TABLET;ORAL
Application: A216537 | Product #003 | TE Code: AB
Applicant: AUROBINDO PHARMA LTD
Approved: Nov 28, 2022 | RLD: No | RS: No | Type: RX